FAERS Safety Report 10128143 (Version 2)
Quarter: 2014Q2

REPORT INFORMATION
  Report Type: Spontaneous
  Country: DE (occurrence: DE)
  Receive Date: 20140428
  Receipt Date: 20140507
  Transmission Date: 20141212
  Serious: Yes (Hospitalization)
  Sender: FDA-Public Use
  Company Number: DE-BIOGENIDEC-2014BI037098

PATIENT
  Sex: Female
  Weight: 78 kg

DRUGS (5)
  1. TECFIDERA [Suspect]
     Indication: MULTIPLE SCLEROSIS
     Route: 048
     Dates: start: 20140327, end: 20140416
  2. CITALOPRAM [Concomitant]
     Indication: DEPRESSION
     Dates: start: 2008
  3. LYRICA [Concomitant]
     Indication: NEURALGIA
     Dates: start: 2008
  4. PANTOZOLE [Concomitant]
     Dates: start: 2008
  5. TOVIAZ [Concomitant]
     Indication: POLLAKIURIA
     Dates: start: 2013

REACTIONS (2)
  - Gastritis [Not Recovered/Not Resolved]
  - Diaphragmatic hernia [Not Recovered/Not Resolved]
